FAERS Safety Report 23294689 (Version 1)
Quarter: 2023Q4

REPORT INFORMATION
  Report Type: Spontaneous
  Country: US (occurrence: None)
  Receive Date: 20231213
  Receipt Date: 20231213
  Transmission Date: 20240109
  Serious: Yes (Other)
  Sender: FDA-Public Use
  Company Number: None

PATIENT
  Age: 56 Year
  Sex: Female
  Weight: 69.75 kg

DRUGS (4)
  1. PROHANCE [Suspect]
     Active Substance: GADOTERIDOL
  2. KEPPRA [Concomitant]
     Active Substance: LEVETIRACETAM
  3. ATENOLOL [Concomitant]
     Active Substance: ATENOLOL
  4. VITAMIN D [Concomitant]
     Active Substance: VITAMIN D NOS

REACTIONS (2)
  - Anaphylactic reaction [None]
  - Contrast media reaction [None]

NARRATIVE: CASE EVENT DATE: 20230828
